FAERS Safety Report 17515199 (Version 1)
Quarter: 2020Q1

REPORT INFORMATION
  Report Type: Spontaneous
  Country: GB (occurrence: GB)
  Receive Date: 20200309
  Receipt Date: 20200309
  Transmission Date: 20200409
  Serious: Yes (Other)
  Sender: FDA-Public Use
  Company Number: GB-MICRO LABS LIMITED-ML2020-00605

PATIENT
  Age: 90 Year
  Sex: Female

DRUGS (4)
  1. ASPIRIN. [Concomitant]
     Active Substance: ASPIRIN
     Dosage: 300 MG ASPIRIN FOLLOWED BY 75 MG ONCE DAILY BETWEEN DAY 1 AND DAY 20.
  2. CLOPIDOGREL [Interacting]
     Active Substance: CLOPIDOGREL BISULFATE
     Indication: TRANSIENT ISCHAEMIC ATTACK
     Dosage: STARTED FOLLOWING TIA CLINIC APPOINTMENT ON DAY 20
  3. NIFEDIPINE. [Interacting]
     Active Substance: NIFEDIPINE
     Indication: HYPERTENSION
     Dosage: MODIFIED RELEASE, LONG-STANDING
  4. ATORVASTATIN [Suspect]
     Active Substance: ATORVASTATIN
     Indication: TRANSIENT ISCHAEMIC ATTACK
     Dosage: 40 MG ONCE NIGHTLY (STARTED IN TIA CLINIC FOLLOW-UP APPOINTMENT) ON DAY 92

REACTIONS (2)
  - Drug-induced liver injury [Recovered/Resolved]
  - Drug interaction [Unknown]
